FAERS Safety Report 9398482 (Version 2)
Quarter: 2013Q3

REPORT INFORMATION
  Report Type: Spontaneous
  Country: JP (occurrence: JP)
  Receive Date: 20130712
  Receipt Date: 20130819
  Transmission Date: 20140515
  Serious: Yes (Other)
  Sender: FDA-Public Use
  Company Number: JP-TEVA-417412USA

PATIENT
  Age: 58 Year
  Sex: Female

DRUGS (3)
  1. BENDAMUSTINE [Suspect]
     Indication: B-CELL LYMPHOMA
     Dosage: UID/QD
     Route: 042
     Dates: start: 20130509, end: 20130510
  2. BENDAMUSTINE [Suspect]
     Route: 042
     Dates: start: 20130606, end: 20130607
  3. RITUXIMAB [Concomitant]
     Dates: start: 20130509, end: 20130607

REACTIONS (2)
  - Cystitis haemorrhagic [Recovered/Resolved]
  - Diarrhoea [Recovered/Resolved]
